FAERS Safety Report 7461709-9 (Version None)
Quarter: 2011Q2

REPORT INFORMATION
  Report Type: 
  Country: None (occurrence: None)
  Receive Date: 20110506
  Receipt Date: 20100723
  Transmission Date: 20111010
  Serious: Yes (Hospitalization, Other)
  Sender: FDA-Public Use
  Company Number: US-BAYER-200715855NA

PATIENT
  Age: 38 Year
  Sex: Female
  Weight: 64 kg

DRUGS (6)
  1. VALIUM [Concomitant]
     Indication: PRODUCT USED FOR UNKNOWN INDICATION
  2. YASMIN [Suspect]
     Indication: ORAL CONTRACEPTION
     Dosage: 1 DF (DAILY DOSE), QD, ORAL
     Route: 048
     Dates: start: 20070201, end: 20071018
  3. NASONEX [Concomitant]
     Dosage: 50 MCG/24HR, UNK
     Route: 045
  4. LEVOTHYROXINE SODIUM [Concomitant]
     Indication: HYPOTHYROIDISM
  5. IBUPROFEN [Concomitant]
     Dosage: 800 MCG/24HR, UNK
     Route: 048
  6. AZITHROMYCIN [Concomitant]
     Dosage: UNK
     Route: 048

REACTIONS (15)
  - ANXIETY [None]
  - INJURY [None]
  - APHASIA [None]
  - PAIN [None]
  - BALANCE DISORDER [None]
  - CONFUSIONAL STATE [None]
  - CEREBROVASCULAR ACCIDENT [None]
  - CLUMSINESS [None]
  - SPEECH DISORDER [None]
  - DIZZINESS [None]
  - INCOHERENT [None]
  - MUSCULAR WEAKNESS [None]
  - NERVE INJURY [None]
  - VIITH NERVE PARALYSIS [None]
  - THROMBOSIS [None]
